FAERS Safety Report 18445235 (Version 2)
Quarter: 2020Q4

REPORT INFORMATION
  Report Type: Spontaneous
  Country: CH (occurrence: CH)
  Receive Date: 20201030
  Receipt Date: 20201118
  Transmission Date: 20210114
  Serious: Yes (Other)
  Sender: FDA-Public Use
  Company Number: NVSC2020CH290780

PATIENT
  Sex: Female

DRUGS (18)
  1. METHOTREXATE. [Suspect]
     Active Substance: METHOTREXATE
     Indication: RETINAL VASCULITIS
  2. BRIMONIDINE [Concomitant]
     Active Substance: BRIMONIDINE TARTRATE
     Indication: UVEITIS
     Dosage: UNK (FREQUENCY: 2XL)
     Route: 065
  3. ORENCIA [Concomitant]
     Active Substance: ABATACEPT
     Indication: MACULAR OEDEMA
  4. METHOTREXATE. [Suspect]
     Active Substance: METHOTREXATE
     Indication: MACULAR OEDEMA
  5. COSOPT [Concomitant]
     Active Substance: DORZOLAMIDE HYDROCHLORIDE\TIMOLOL MALEATE
     Indication: UVEITIS
     Dosage: UNK (FREQUENCY: 2XL)
     Route: 065
  6. BRIMONIDINE [Concomitant]
     Active Substance: BRIMONIDINE TARTRATE
     Indication: RETINAL VASCULITIS
  7. MAXIDEX [Concomitant]
     Active Substance: DEXAMETHASONE
     Indication: RETINAL VASCULITIS
  8. MYFORTIC [Concomitant]
     Active Substance: MYCOPHENOLATE SODIUM
     Indication: RETINAL VASCULITIS
  9. MYFORTIC [Concomitant]
     Active Substance: MYCOPHENOLATE SODIUM
     Indication: UVEITIS
     Route: 065
  10. MYFORTIC [Concomitant]
     Active Substance: MYCOPHENOLATE SODIUM
     Indication: MACULAR OEDEMA
  11. MAXIDEX [Concomitant]
     Active Substance: DEXAMETHASONE
     Indication: UVEITIS
     Dosage: UNK (FREQUENCY: 2XR/L)
     Route: 065
  12. COSOPT [Concomitant]
     Active Substance: DORZOLAMIDE HYDROCHLORIDE\TIMOLOL MALEATE
     Indication: RETINAL VASCULITIS
  13. COSOPT [Concomitant]
     Active Substance: DORZOLAMIDE HYDROCHLORIDE\TIMOLOL MALEATE
     Indication: MACULAR OEDEMA
  14. MAXIDEX [Concomitant]
     Active Substance: DEXAMETHASONE
     Indication: MACULAR OEDEMA
  15. METHOTREXATE. [Suspect]
     Active Substance: METHOTREXATE
     Indication: UVEITIS
     Route: 065
  16. BRIMONIDINE [Concomitant]
     Active Substance: BRIMONIDINE TARTRATE
     Indication: MACULAR OEDEMA
  17. ORENCIA [Concomitant]
     Active Substance: ABATACEPT
     Indication: UVEITIS
     Route: 065
  18. ORENCIA [Concomitant]
     Active Substance: ABATACEPT
     Indication: RETINAL VASCULITIS

REACTIONS (4)
  - Product use in unapproved indication [Unknown]
  - Iridocyclitis [Unknown]
  - Eye inflammation [Unknown]
  - Glaucoma [Unknown]
